FAERS Safety Report 16300095 (Version 2)
Quarter: 2019Q2

REPORT INFORMATION
  Report Type: Spontaneous
  Country: US (occurrence: US)
  Receive Date: 20190510
  Receipt Date: 20190517
  Transmission Date: 20190711
  Serious: Yes (Other)
  Sender: FDA-Public Use
  Company Number: US-PFIZER INC-2019196938

PATIENT
  Age: 17 Year
  Sex: Male

DRUGS (11)
  1. FENTANYL CITRATE. [Suspect]
     Active Substance: FENTANYL CITRATE
     Dosage: AVERAGE OF 109 UG/H, (47 BOOSTS AND 107 ATTEMPTS); DAY 3
  2. FENTANYL CITRATE. [Suspect]
     Active Substance: FENTANYL CITRATE
     Dosage: 101 UG/H (39 BOOSTS AND 62 ATTEMPTS); DAY 4
  3. MORPHINE SULFATE. [Suspect]
     Active Substance: MORPHINE SULFATE
     Dosage: DAILY AVERAGE OF 113 MG OF MORPHINE (131 BOOSTS AND 281 ATTEMPTS)
  4. FENTANYL CITRATE. [Suspect]
     Active Substance: FENTANYL CITRATE
     Dosage: AVERAGE OF 117 UG/H (37 BOOSTS AND 56 ATTEMPTS); DAY 5
  5. FENTANYL CITRATE. [Suspect]
     Active Substance: FENTANYL CITRATE
     Dosage: 20 ?G BOOSTS
  6. MORPHINE SULFATE. [Suspect]
     Active Substance: MORPHINE SULFATE
     Indication: CANCER PAIN
     Dosage: 1.5 MG BOOSTS EVERY 20 MINUTES
  7. FENTANYL CITRATE. [Suspect]
     Active Substance: FENTANYL CITRATE
     Indication: CANCER PAIN
     Dosage: 25 UG PER HOUR BY CONTINUOUS INFUSION
     Route: 041
  8. FENTANYL CITRATE. [Suspect]
     Active Substance: FENTANYL CITRATE
     Dosage: AVERAGE OF 113 UG/H (22 BOOSTS AND 137 ATTEMPTS); DAY 1
  9. MORPHINE SULFATE. [Suspect]
     Active Substance: MORPHINE SULFATE
     Dosage: 2 MG MORPHINE PER HOUR BY CONTINUOUS INFUSION
     Route: 041
  10. FENTANYL CITRATE. [Suspect]
     Active Substance: FENTANYL CITRATE
     Dosage: CLINICIAN BOLUSES EVERY 30 MINUTES
  11. FENTANYL CITRATE. [Suspect]
     Active Substance: FENTANYL CITRATE
     Dosage: AVERAGE OF 90 UG/H, (53 BOOSTS AND 160 ATTEMPTS); DAY 2

REACTIONS (3)
  - Sedation complication [Recovering/Resolving]
  - Intentional product misuse [Recovering/Resolving]
  - Drug use disorder [Recovering/Resolving]
